FAERS Safety Report 6169133-6 (Version None)
Quarter: 2009Q2

REPORT INFORMATION
  Report Type: 
  Country: None (occurrence: None)
  Receive Date: 20090427
  Receipt Date: 20090414
  Transmission Date: 20091009
  Serious: Yes (Hospitalization)
  Sender: FDA-Public Use
  Company Number: US-ELI_LILLY_AND_COMPANY-US97080943A

PATIENT
  Weight: 3 kg

DRUGS (1)
  1. PROZAC [Suspect]
     Dosage: UNK, UNKNOWN

REACTIONS (9)
  - BLOOD CREATINE PHOSPHOKINASE INCREASED [None]
  - BLOOD LACTATE DEHYDROGENASE INCREASED [None]
  - CLAVICLE FRACTURE [None]
  - DRUG EXPOSURE DURING PREGNANCY [None]
  - DYSPNOEA [None]
  - FEELING JITTERY [None]
  - HYPERTONIA [None]
  - PETECHIAE [None]
  - SUBDURAL HAEMATOMA [None]
